FAERS Safety Report 7389993-0 (Version None)
Quarter: 2011Q2

REPORT INFORMATION
  Report Type: 
  Country: None (occurrence: None)
  Receive Date: 20110401
  Receipt Date: 20110330
  Transmission Date: 20111010
  Serious: Yes (Death, Other)
  Sender: FDA-Public Use
  Company Number: US-AMGEN-QUU438790

PATIENT
  Age: 78 Year
  Sex: Male
  Weight: 86.7 kg

DRUGS (4)
  1. AZATHIOPRINE [Concomitant]
     Dosage: UNK UNK, UNK
     Dates: start: 20100111
  2. RITUXIMAB [Concomitant]
  3. NPLATE [Suspect]
     Indication: THROMBOCYTOPENIA
  4. NPLATE [Suspect]
     Indication: IDIOPATHIC THROMBOCYTOPENIC PURPURA
     Dosage: 83 A?G, QWK
     Route: 058
     Dates: start: 20100128, end: 20100623

REACTIONS (2)
  - DIFFUSE LARGE B-CELL LYMPHOMA [None]
  - DRUG INEFFECTIVE [None]
